FAERS Safety Report 9246118 (Version 4)
Quarter: 2015Q2

REPORT INFORMATION
  Report Type: Spontaneous
  Country: US (occurrence: US)
  Receive Date: 20130422
  Receipt Date: 20150605
  Transmission Date: 20150821
  Serious: Yes (Hospitalization, Disabling)
  Sender: FDA-Public Use
  Company Number: US-009507513-1304USA010610

PATIENT
  Sex: Male

DRUGS (1)
  1. PROPECIA [Suspect]
     Active Substance: FINASTERIDE
     Indication: ALOPECIA
     Dosage: 1 MG, QD
     Route: 048
     Dates: start: 1998, end: 201206

REACTIONS (20)
  - Endocrine disorder [Unknown]
  - Brain injury [Unknown]
  - Semen volume decreased [Unknown]
  - Erectile dysfunction [Not Recovered/Not Resolved]
  - Testicular atrophy [Unknown]
  - Cardiac disorder [Unknown]
  - Liver function test abnormal [Unknown]
  - Penis injury [Unknown]
  - Depression [Not Recovered/Not Resolved]
  - Injury [Unknown]
  - Chest pain [Unknown]
  - Hyperlipidaemia [Unknown]
  - Sexual dysfunction [Not Recovered/Not Resolved]
  - Cognitive disorder [Not Recovered/Not Resolved]
  - Penile size reduced [Unknown]
  - Ejaculation disorder [Unknown]
  - Breast enlargement [Unknown]
  - Anxiety [Not Recovered/Not Resolved]
  - Peyronie^s disease [Unknown]
  - Loss of libido [Unknown]

NARRATIVE: CASE EVENT DATE: 1998
